FAERS Safety Report 6118878-2 (Version None)
Quarter: 2009Q1

REPORT INFORMATION
  Report Type: 
  Country: None (occurrence: None)
  Receive Date: 20090316
  Receipt Date: 20090311
  Transmission Date: 20090719
  Serious: Yes (Death)
  Sender: FDA-Public Use
  Company Number: CA-JNJFOC-20050300451

PATIENT
  Age: 51 Year
  Sex: Male
  Weight: 146 kg

DRUGS (14)
  1. DURAGESIC-100 [Suspect]
     Route: 062
  2. DURAGESIC-100 [Suspect]
     Indication: DRUG USE FOR UNKNOWN INDICATION
     Route: 062
  3. AMITRIPTYLINE [Concomitant]
  4. DIAZEPAM [Concomitant]
  5. PENTOXIFYLLINE [Concomitant]
  6. ATROVENT [Concomitant]
  7. ELTROXIN [Concomitant]
  8. BACLOFEN [Concomitant]
  9. CIPROFLOXACIN [Concomitant]
  10. PANTOPRAZOLE SODIUM [Concomitant]
  11. LACTULOSE [Concomitant]
  12. DOMPERIDONE [Concomitant]
  13. SALBUTAMOL [Concomitant]
  14. TYLENOL W/ CODEINE NO. 3 [Concomitant]

REACTIONS (6)
  - ACCIDENTAL OVERDOSE [None]
  - ANOXIA [None]
  - CARDIOMYOPATHY [None]
  - INAPPROPRIATE SCHEDULE OF DRUG ADMINISTRATION [None]
  - LOSS OF CONSCIOUSNESS [None]
  - MYOCARDIAL INFARCTION [None]
